FAERS Safety Report 11128962 (Version 2)
Quarter: 2015Q2

REPORT INFORMATION
  Report Type: Report from Study
  Country: VE (occurrence: VE)
  Receive Date: 20150521
  Receipt Date: 20150528
  Transmission Date: 20150821
  Serious: Yes (Other)
  Sender: FDA-Public Use
  Company Number: VE-BAYER-2015-247706

PATIENT
  Age: 38 Year
  Sex: Male

DRUGS (1)
  1. BETAFERON [Suspect]
     Active Substance: INTERFERON BETA-1B
     Indication: MULTIPLE SCLEROSIS
     Dosage: 0.25 ?G/D, QOD
     Route: 058
     Dates: start: 20130507, end: 20150303

REACTIONS (2)
  - Drug ineffective [None]
  - Multiple sclerosis [Not Recovered/Not Resolved]
